FAERS Safety Report 12857683 (Version 3)
Quarter: 2017Q1

REPORT INFORMATION
  Report Type: Spontaneous
  Country: FR (occurrence: FR)
  Receive Date: 20161018
  Receipt Date: 20170224
  Transmission Date: 20170428
  Serious: Yes (Other)
  Sender: FDA-Public Use
  Company Number: FR-AMGEN-FRASP2016142430

PATIENT
  Age: 67 Year
  Sex: Female
  Weight: 46 kg

DRUGS (1)
  1. PROLIA [Suspect]
     Active Substance: DENOSUMAB
     Indication: OSTEOPOROSIS POSTMENOPAUSAL
     Dosage: UNK, Q6MO
     Route: 058
     Dates: start: 20160603

REACTIONS (5)
  - Necrosis [Recovered/Resolved]
  - Arthropod bite [Recovered/Resolved]
  - Pruritus [Unknown]
  - Pain [Recovered/Resolved]
  - Infected skin ulcer [Unknown]

NARRATIVE: CASE EVENT DATE: 201608
